FAERS Safety Report 10314541 (Version 3)
Quarter: 2015Q2

REPORT INFORMATION
  Report Type: Spontaneous
  Country: ES (occurrence: None)
  Receive Date: 20140714
  Receipt Date: 20150430
  Transmission Date: 20150821
  Serious: Yes (Death, Other)
  Sender: FDA-Public Use
  Company Number: UTC-038914

PATIENT
  Age: 23 Year
  Sex: Female
  Weight: 55 kg

DRUGS (5)
  1. PROCORALAN (VABRADINE HYDROCHLORIDE) [Concomitant]
  2. VOLIBRIS (AMBRISENTAN) [Concomitant]
  3. REMODULIN [Suspect]
     Active Substance: TREPROSTINIL
     Indication: PULMONARY HYPERTENSION
     Route: 058
     Dates: start: 20121219
  4. REVATIO (SILDENAFIL CITRATE) [Concomitant]
  5. SUMIAL (PROPRANOLOL HYDROCHLORIDE) [Concomitant]

REACTIONS (16)
  - Necrosis [None]
  - Bundle branch block right [None]
  - Waist circumference increased [None]
  - Abdominal distension [None]
  - Adjustment disorder [None]
  - Systolic dysfunction [None]
  - Death [None]
  - Procedural complication [None]
  - Dyspnoea [None]
  - Injection site pain [None]
  - Cardiac arrest [None]
  - Infusion site inflammation [None]
  - Haemoptysis [None]
  - Liver tenderness [None]
  - Pulmonary hypertension [None]
  - Upper respiratory tract infection [None]

NARRATIVE: CASE EVENT DATE: 20130312
